FAERS Safety Report 9339462 (Version 4)
Quarter: 2014Q2

REPORT INFORMATION
  Report Type: Spontaneous
  Country: US (occurrence: US)
  Receive Date: 20130610
  Receipt Date: 20140512
  Transmission Date: 20141212
  Serious: Yes (Hospitalization, Other)
  Sender: FDA-Public Use
  Company Number: US-009507513-1306USA002133

PATIENT
  Sex: Female
  Weight: 51.7 kg

DRUGS (5)
  1. FOSAMAX [Suspect]
     Indication: OSTEOPENIA
     Dosage: 70 MG, UNK
     Route: 048
     Dates: start: 20051117, end: 2011
  2. ALENDRONATE SODIUM [Suspect]
     Dosage: 70 MG, QW
  3. ALENDRONATE SODIUM [Suspect]
     Dosage: 35 MG, QW
  4. VITAMINS (UNSPECIFIED) [Concomitant]
     Dosage: UNK QD
     Dates: start: 1998
  5. IRON (UNSPECIFIED) [Concomitant]
     Dosage: UNK,QD
     Dates: start: 1998

REACTIONS (29)
  - Femoral neck fracture [Unknown]
  - Hip arthroplasty [Unknown]
  - Acute myocardial infarction [Unknown]
  - Low turnover osteopathy [Unknown]
  - Depression [Unknown]
  - Anxiety [Unknown]
  - Hypothyroidism [Unknown]
  - Macular degeneration [Unknown]
  - Hypertension [Unknown]
  - Sinus operation [Unknown]
  - Varicose vein operation [Unknown]
  - Cardiac function test abnormal [Unknown]
  - Confusional state [Unknown]
  - Aortic bruit [Unknown]
  - Brain contusion [Unknown]
  - Haematuria [Unknown]
  - Cardiac failure congestive [Unknown]
  - Diastolic dysfunction [Unknown]
  - Hyponatraemia [Unknown]
  - Hypokalaemia [Unknown]
  - Sleep apnoea syndrome [Unknown]
  - Confusion postoperative [Unknown]
  - Leukocytosis [Unknown]
  - Anaemia [Unknown]
  - Fibromyalgia [Unknown]
  - Cognitive disorder [Unknown]
  - Amnesia [Unknown]
  - Osteoporosis [Unknown]
  - Dizziness [Unknown]
